FAERS Safety Report 8825974 (Version 2)
Quarter: 2012Q4

REPORT INFORMATION
  Report Type: 
  Country: DK (occurrence: DK)
  Receive Date: 20121005
  Receipt Date: 20121022
  Transmission Date: 20130627
  Serious: Yes (Disabling, Other)
  Sender: FDA-Public Use
  Company Number: DK-PFIZER INC-2012243497

PATIENT
  Sex: Female

DRUGS (2)
  1. CLINDAMYCIN HCL [Suspect]
     Indication: INFECTION
  2. VIBRADOX [Suspect]
     Indication: BORRELIA INFECTION
     Route: 048

REACTIONS (3)
  - Angioedema [Recovering/Resolving]
  - Neurological symptom [Recovering/Resolving]
  - Urticaria [Recovering/Resolving]
